FAERS Safety Report 11849066 (Version 1)
Quarter: 2015Q4

REPORT INFORMATION
  Report Type: Spontaneous
  Country: TW (occurrence: TW)
  Receive Date: 20151218
  Receipt Date: 20151218
  Transmission Date: 20160305
  Serious: Yes (Death, Hospitalization, Other)
  Sender: FDA-Public Use
  Company Number: TW-BAYER-2015-484315

PATIENT
  Age: 71 Year
  Sex: Male

DRUGS (1)
  1. CIPROXIN [Suspect]
     Active Substance: CIPROFLOXACIN
     Indication: ORCHITIS
     Dosage: UNK

REACTIONS (11)
  - Acute kidney injury [None]
  - Drug ineffective [None]
  - Necrotising fasciitis [None]
  - General physical health deterioration [None]
  - Hepatic failure [Fatal]
  - Urinary tract infection fungal [None]
  - Urinary tract infection [None]
  - Haemodynamic instability [None]
  - Scrotal swelling [None]
  - Septic shock [None]
  - Wound infection fungal [None]
